FAERS Safety Report 16020056 (Version 1)
Quarter: 2019Q1

REPORT INFORMATION
  Report Type: Report from Study
  Country: ZA (occurrence: ZA)
  Receive Date: 20190228
  Receipt Date: 20190228
  Transmission Date: 20190418
  Serious: Yes (Other)
  Sender: FDA-Public Use
  Company Number: PHHY2018ZA171040

PATIENT
  Sex: Female

DRUGS (2)
  1. MEROJECT [Suspect]
     Active Substance: MEROPENEM
     Indication: PRODUCT USED FOR UNKNOWN INDICATION
     Dosage: UNK
     Route: 065
  2. TOBI [Suspect]
     Active Substance: TOBRAMYCIN
     Indication: CYSTIC FIBROSIS
     Dosage: (300MG /5ML)
     Route: 055

REACTIONS (3)
  - Inappropriate schedule of product administration [Unknown]
  - Bronchiectasis [Unknown]
  - Treatment noncompliance [None]
